FAERS Safety Report 18248518 (Version 1)
Quarter: 2020Q3

REPORT INFORMATION
  Report Type: Spontaneous
  Country: HR (occurrence: HR)
  Receive Date: 20200909
  Receipt Date: 20200909
  Transmission Date: 20201103
  Serious: Yes (Disabling)
  Sender: FDA-Public Use
  Company Number: HR-TEVA-2020-HR-1824473

PATIENT
  Age: 46 Year
  Sex: Male
  Weight: 86 kg

DRUGS (30)
  1. CERSON [Concomitant]
     Active Substance: NITRAZEPAM
     Route: 048
  2. LOQUEN [Suspect]
     Active Substance: QUETIAPINE FUMARATE
     Dosage: 50 MG
     Route: 048
  3. WELLBUTRIN [Concomitant]
     Active Substance: BUPROPION HYDROCHLORIDE
     Route: 048
  4. DIAZEPAM. [Concomitant]
     Active Substance: DIAZEPAM
     Route: 048
  5. HALDOL [Suspect]
     Active Substance: HALOPERIDOL
     Dosage: 5 MG
     Route: 048
     Dates: start: 20140326, end: 20150228
  6. AKINETON [Concomitant]
     Active Substance: BIPERIDEN HYDROCHLORIDE
     Indication: SOMATIC SYMPTOM DISORDER
     Dosage: 2 MG
     Route: 048
     Dates: start: 20150210, end: 20200615
  7. LORSILAN [Concomitant]
     Active Substance: LORAZEPAM
     Route: 048
  8. HELEX [Concomitant]
     Active Substance: ALPRAZOLAM
     Route: 048
  9. BRINTELLIX [Concomitant]
     Active Substance: VORTIOXETINE HYDROBROMIDE
     Route: 048
  10. RIVOTRIL [Concomitant]
     Active Substance: CLONAZEPAM
     Route: 048
  11. COAXIL [Concomitant]
     Active Substance: TIANEPTINE SODIUM
     Route: 048
  12. SERPENTIL [Concomitant]
     Route: 048
  13. MIRZATEN [Concomitant]
     Active Substance: MIRTAZAPINE
     Route: 048
  14. PRAZINE [Concomitant]
     Route: 048
  15. LEPONEX [Suspect]
     Active Substance: CLOZAPINE
     Indication: SOMATIC SYMPTOM DISORDER
     Dosage: 12.5 MG
     Route: 048
     Dates: start: 20200217, end: 20200701
  16. AZOLAR [Suspect]
     Active Substance: ARIPIPRAZOLE
     Indication: SOMATIC SYMPTOM DISORDER
     Dosage: 10 MG
     Route: 048
     Dates: start: 20150324, end: 20200519
  17. DULOXETINE. [Concomitant]
     Active Substance: DULOXETINE
     Route: 048
  18. ZOLOFT [Concomitant]
     Active Substance: SERTRALINE HYDROCHLORIDE
     Route: 048
  19. XANAX [Concomitant]
     Active Substance: ALPRAZOLAM
     Route: 048
  20. MISAR [Concomitant]
     Route: 048
  21. AMYZOL [Concomitant]
     Active Substance: AMITRIPTYLINE
     Route: 048
  22. VAIRA [Suspect]
     Active Substance: OLANZAPINE
     Dosage: 5 MG
     Route: 048
     Dates: start: 20130307, end: 20130606
  23. VALDOXAN [Concomitant]
     Active Substance: AGOMELATINE
     Route: 048
  24. OXAZEPAM. [Concomitant]
     Active Substance: OXAZEPAM
     Route: 048
  25. FEVARIN [Concomitant]
     Active Substance: FLUVOXAMINE MALEATE
     Route: 048
  26. SEROXAT [Concomitant]
     Active Substance: PAROXETINE HYDROCHLORIDE
     Indication: SOMATIC SYMPTOM DISORDER
     Dosage: 30 MG
     Route: 048
     Dates: start: 20120120, end: 20200418
  27. EGLONYL FORTE [Suspect]
     Active Substance: SULPIRIDE
     Indication: SOMATIC SYMPTOM DISORDER
     Dosage: 200 MG
     Route: 048
     Dates: start: 20161125, end: 20191130
  28. RISSET [Suspect]
     Active Substance: RISPERIDONE
     Indication: SOMATIC SYMPTOM DISORDER
     Dosage: 2 MG
     Route: 048
     Dates: start: 20191223, end: 20200615
  29. SANVAL [Concomitant]
     Active Substance: ZOLPIDEM TARTRATE
     Route: 048
  30. LEXAURIN [Concomitant]
     Active Substance: BROMAZEPAM
     Route: 048

REACTIONS (6)
  - Learning disorder [Recovered/Resolved with Sequelae]
  - Memory impairment [Recovered/Resolved with Sequelae]
  - Time perception altered [Recovered/Resolved with Sequelae]
  - Mental fatigue [Recovered/Resolved with Sequelae]
  - Cognitive disorder [Recovered/Resolved with Sequelae]
  - Medication error [Recovered/Resolved with Sequelae]

NARRATIVE: CASE EVENT DATE: 20140327
